FAERS Safety Report 10080964 (Version 1)
Quarter: 2014Q2

REPORT INFORMATION
  Report Type: Spontaneous
  Country: US (occurrence: US)
  Receive Date: 20140416
  Receipt Date: 20140416
  Transmission Date: 20141212
  Serious: Yes (Other)
  Sender: FDA-Public Use
  Company Number: US-PFIZER INC-2014101889

PATIENT
  Age: 73 Year
  Sex: Female
  Weight: 72.6 kg

DRUGS (4)
  1. LEVOXYL [Suspect]
     Indication: HORMONE REPLACEMENT THERAPY
     Dosage: UNK
  2. LEVOXYL [Suspect]
     Dosage: 100 UG, DAILY
     Dates: start: 201403
  3. INSULIN [Concomitant]
     Indication: DIABETES MELLITUS
     Dosage: UNK
  4. DIOVAN (VALSARTAN) [Concomitant]
     Indication: HYPERTENSION
     Dosage: 160 MG, DAILY

REACTIONS (4)
  - Product quality issue [Unknown]
  - Blood pressure inadequately controlled [Unknown]
  - Malaise [Unknown]
  - Myalgia [Unknown]
